FAERS Safety Report 25334571 (Version 4)
Quarter: 2025Q2

REPORT INFORMATION
  Report Type: Spontaneous
  Country: US (occurrence: US)
  Receive Date: 20250520
  Receipt Date: 20250603
  Transmission Date: 20250716
  Serious: Yes (Hospitalization, Other)
  Sender: DOMPE FARMACEUTICI
  Company Number: US-FARMAPROD-202406-2367

PATIENT
  Sex: Female

DRUGS (31)
  1. OXERVATE [Suspect]
     Active Substance: CENEGERMIN-BKBJ
     Indication: Neurotrophic keratopathy
     Route: 047
     Dates: start: 20240617, end: 20240812
  2. OXERVATE [Suspect]
     Active Substance: CENEGERMIN-BKBJ
  3. OXERVATE [Suspect]
     Active Substance: CENEGERMIN-BKBJ
  4. OXERVATE [Suspect]
     Active Substance: CENEGERMIN-BKBJ
     Route: 047
     Dates: start: 20250403
  5. LANTUS [Concomitant]
     Active Substance: INSULIN GLARGINE
  6. HUMALOG [Concomitant]
     Active Substance: INSULIN LISPRO
  7. ROSUVASTATIN CALCIUM [Concomitant]
     Active Substance: ROSUVASTATIN CALCIUM
  8. ELIQUIS [Concomitant]
     Active Substance: APIXABAN
  9. FAMOTIDINE [Concomitant]
     Active Substance: FAMOTIDINE
  10. PLAVIX [Concomitant]
     Active Substance: CLOPIDOGREL BISULFATE
  11. FUROSEMIDE [Concomitant]
     Active Substance: FUROSEMIDE
  12. LOSARTAN POTASSIUM [Concomitant]
     Active Substance: LOSARTAN POTASSIUM
  13. VITAMIN D-400 [Concomitant]
  14. ZINC-15 [Concomitant]
  15. BIOTIN [Concomitant]
     Active Substance: BIOTIN
  16. MAGNESIUM [Concomitant]
     Active Substance: MAGNESIUM
  17. VITAMIN B12 [Concomitant]
     Active Substance: CYANOCOBALAMIN
  18. ERYTHROMYCIN [Concomitant]
     Active Substance: ERYTHROMYCIN
  19. ERYTHROMYCIN [Concomitant]
     Active Substance: ERYTHROMYCIN
  20. REFRESH RELIEVA PF [Concomitant]
     Active Substance: CARBOXYMETHYLCELLULOSE SODIUM\GLYCERIN
  21. RESTASIS [Concomitant]
     Active Substance: CYCLOSPORINE
  22. EZETIMIBE [Concomitant]
     Active Substance: EZETIMIBE
  23. ATORVASTATIN [Concomitant]
     Active Substance: ATORVASTATIN
     Route: 048
  24. VITAMIN C [Concomitant]
     Active Substance: ASCORBIC ACID
     Route: 048
  25. CLOPIDOGREL [Concomitant]
     Active Substance: CLOPIDOGREL BISULFATE
     Route: 048
  26. ELIQUIS [Concomitant]
     Active Substance: APIXABAN
     Route: 048
  27. ERGOCALCIFEROL [Concomitant]
     Active Substance: ERGOCALCIFEROL
     Route: 048
  28. FAMOTIDINE [Concomitant]
     Active Substance: FAMOTIDINE
     Route: 048
  29. INSULIN LISPRO [Concomitant]
     Active Substance: INSULIN LISPRO
  30. MOXIFLOXACIN [Concomitant]
     Active Substance: MOXIFLOXACIN
  31. ARTIFICIAL TEARS [Concomitant]

REACTIONS (4)
  - Road traffic accident [Recovering/Resolving]
  - Hip fracture [Recovering/Resolving]
  - Product dose omission issue [Recovered/Resolved]
  - Pain [Unknown]
